FAERS Safety Report 12214872 (Version 6)
Quarter: 2016Q3

REPORT INFORMATION
  Report Type: Report from Study
  Country: JP (occurrence: JP)
  Receive Date: 20160328
  Receipt Date: 20160906
  Transmission Date: 20161109
  Serious: Yes (Other)
  Sender: FDA-Public Use
  Company Number: JP-TEVA-647321ISR

PATIENT
  Age: 74 Year
  Sex: Male
  Weight: 66.7 kg

DRUGS (11)
  1. CANDESARTAN [Concomitant]
     Active Substance: CANDESARTAN
     Dates: start: 20150821
  2. REBAMIPIDE [Concomitant]
     Active Substance: REBAMIPIDE
     Dates: start: 20141022
  3. AMLODIPINE [Concomitant]
     Active Substance: AMLODIPINE BESYLATE
     Dates: start: 20160218
  4. RABEPRAZOLE SODIUM. [Concomitant]
     Active Substance: RABEPRAZOLE SODIUM
     Dates: start: 20150108, end: 20160714
  5. SENNOSIDE [Suspect]
     Active Substance: SENNOSIDES
     Indication: CONSTIPATION
     Dosage: 36 MILLIGRAM DAILY;
     Route: 048
     Dates: start: 20160302, end: 20160713
  6. RASAGILINE MESILATE [Suspect]
     Active Substance: RASAGILINE MESYLATE
     Indication: PARKINSON^S DISEASE
     Dosage: .5 MILLIGRAM DAILY; DBPC: RASAGILINE 0.5 MG, 1.0 MG OR PLACEBO
     Route: 048
     Dates: start: 20160218, end: 20160317
  7. DOPACOL [Suspect]
     Active Substance: CARBIDOPA\LEVODOPA
     Indication: PARKINSON^S DISEASE
     Dosage: 800 MILLIGRAM DAILY;
     Route: 048
     Dates: start: 20160218, end: 20160308
  8. SANCOBA [Suspect]
     Active Substance: CYANOCOBALAMIN
     Dates: start: 20160128
  9. BELSOMRA [Suspect]
     Active Substance: SUVOREXANT
     Indication: INSOMNIA
     Dosage: 15 MILLIGRAM DAILY;
     Route: 048
     Dates: start: 20160107, end: 20160420
  10. MAGNESIUM OXIDE. [Suspect]
     Active Substance: MAGNESIUM OXIDE
     Indication: CONSTIPATION
     Dosage: 990 MILLIGRAM DAILY;
     Route: 048
     Dates: start: 20160127
  11. NERISONA [Concomitant]
     Active Substance: DIFLUCORTOLONE VALERATE
     Dates: start: 20160302

REACTIONS (1)
  - Interstitial lung disease [Recovering/Resolving]

NARRATIVE: CASE EVENT DATE: 20160307
